FAERS Safety Report 11032050 (Version 3)
Quarter: 2015Q2

REPORT INFORMATION
  Report Type: Report from Study
  Country: CA (occurrence: CA)
  Receive Date: 20150415
  Receipt Date: 20150429
  Transmission Date: 20150821
  Serious: Yes (Hospitalization, Other)
  Sender: FDA-Public Use
  Company Number: CA-JNJFOC-20150408959

PATIENT
  Age: 46 Year
  Sex: Male
  Weight: 85 kg

DRUGS (1)
  1. REMICADE [Suspect]
     Active Substance: INFLIXIMAB
     Indication: COLITIS ULCERATIVE
     Route: 042
     Dates: start: 2010

REACTIONS (6)
  - Red blood cell count decreased [Unknown]
  - Osteomyelitis [Unknown]
  - Diplopia [Unknown]
  - VIth nerve paralysis [Unknown]
  - Cavernous sinus thrombosis [Unknown]
  - Platelet count decreased [Unknown]

NARRATIVE: CASE EVENT DATE: 201504
